FAERS Safety Report 5248160-7 (Version None)
Quarter: 2007Q1

REPORT INFORMATION
  Report Type: 
  Country: None (occurrence: None)
  Receive Date: 20070227
  Receipt Date: 20060412
  Transmission Date: 20070707
  Serious: No
  Sender: FDA-Public Use
  Company Number: US-BRISTOL-MYERS SQUIBB COMPANY-13343983

PATIENT
  Age: 27 Year
  Sex: Female
  Weight: 109 kg

DRUGS (4)
  1. GLUCOPHAGE [Suspect]
     Dates: start: 20051202
  2. HUMALOG [Concomitant]
  3. HUMULIN N [Concomitant]
  4. ALBUTEROL [Concomitant]

REACTIONS (1)
  - PREGNANCY [None]
